FAERS Safety Report 8003967-8 (Version None)
Quarter: 2011Q4

REPORT INFORMATION
  Report Type: 
  Country: None (occurrence: None)
  Receive Date: 20111222
  Receipt Date: 20111214
  Transmission Date: 20120403
  Serious: Yes (Hospitalization)
  Sender: FDA-Public Use
  Company Number: CA-ROCHE-1014892

PATIENT
  Sex: Male

DRUGS (2)
  1. XOLAIR [Suspect]
     Indication: ASTHMA
     Route: 058
     Dates: start: 20080818
  2. WARFARIN SODIUM [Concomitant]

REACTIONS (9)
  - PLEURAL EFFUSION [None]
  - INTERNATIONAL NORMALISED RATIO INCREASED [None]
  - ATELECTASIS [None]
  - DEEP VEIN THROMBOSIS [None]
  - LUNG CONSOLIDATION [None]
  - DYSPNOEA [None]
  - PULMONARY EMBOLISM [None]
  - LOBAR PNEUMONIA [None]
  - HYPOVOLAEMIA [None]
